FAERS Safety Report 25040858 (Version 1)
Quarter: 2025Q1

REPORT INFORMATION
  Report Type: Spontaneous
  Country: US (occurrence: None)
  Receive Date: 20250304
  Receipt Date: 20250304
  Transmission Date: 20250408
  Serious: Yes (Death)
  Sender: FDA-CTU
  Company Number: None

PATIENT
  Age: 69 Year
  Sex: Female

DRUGS (22)
  1. FASENRA [Suspect]
     Active Substance: BENRALIZUMAB
     Indication: Asthma
     Route: 058
     Dates: start: 20231124, end: 20250115
  2. ALBUTEROL [Concomitant]
     Active Substance: ALBUTEROL
  3. ALENDRONATE SODIUM [Concomitant]
     Active Substance: ALENDRONATE SODIUM
  4. AMLODIPINE [Concomitant]
     Active Substance: AMLODIPINE BESYLATE
  5. ASPIRIN [Concomitant]
     Active Substance: ASPIRIN
  6. CLONAZEPAM [Concomitant]
     Active Substance: CLONAZEPAM
  7. DIPHENHYDRAMINE [Concomitant]
     Active Substance: DIPHENHYDRAMINE
  8. Estradiol 2 mg [Concomitant]
  9. GABAPENTIN [Concomitant]
     Active Substance: GABAPENTIN
  10. GEMFIBROZIL [Concomitant]
     Active Substance: GEMFIBROZIL
  11. IMIPRAMINE [Concomitant]
     Active Substance: IMIPRAMINE
  12. Ferrous Sulfate 325 mg [Concomitant]
  13. Levothyroxine 0.075 mg [Concomitant]
  14. LOSARTAN [Concomitant]
     Active Substance: LOSARTAN
  15. METFORMIN [Concomitant]
     Active Substance: METFORMIN HYDROCHLORIDE
  16. MONTELUKAST SODIUM [Concomitant]
     Active Substance: MONTELUKAST SODIUM
  17. OMEPRAZOLE [Concomitant]
     Active Substance: OMEPRAZOLE
  18. Oysco 500/D [Concomitant]
  19. QUETIAPINE [Concomitant]
     Active Substance: QUETIAPINE
  20. ROSUVASTATIN [Concomitant]
     Active Substance: ROSUVASTATIN
  21. Trelegy Ellipta 200-62.5 mg [Concomitant]
  22. Vitamin B-12 1000 mcg [Concomitant]

REACTIONS (2)
  - Chronic obstructive pulmonary disease [None]
  - Disease progression [None]

NARRATIVE: CASE EVENT DATE: 20250115
